FAERS Safety Report 9515629 (Version 3)
Quarter: 2013Q3

REPORT INFORMATION
  Report Type: Report from Study
  Country: GB (occurrence: GB)
  Receive Date: 20130911
  Receipt Date: 20130918
  Transmission Date: 20140515
  Serious: Yes (Hospitalization)
  Sender: FDA-Public Use
  Company Number: GB-ALEXION PHARMACEUTICALS INC.-A201301937

PATIENT
  Age: 42 Year
  Sex: 0

DRUGS (10)
  1. ECULIZUMAB [Suspect]
     Indication: HAEMOLYTIC URAEMIC SYNDROME
     Route: 042
  2. NIFEDIPINE [Concomitant]
     Indication: HYPERTENSION
     Dosage: 30 MG, QD
     Route: 048
     Dates: start: 20100115, end: 20110619
  3. NIFEDIPINE [Concomitant]
     Dosage: 60 MG, QD
     Route: 048
     Dates: start: 20110620, end: 20111102
  4. NIFEDIPINE [Concomitant]
     Dosage: 90 MG, QD
     Route: 048
     Dates: start: 20111103, end: 20130810
  5. DOXAZOSIN [Concomitant]
     Indication: HYPERTENSION
     Dosage: 2 MG, QD
     Route: 048
     Dates: start: 20130811
  6. PREDNISOLONE [Concomitant]
     Indication: PROPHYLAXIS AGAINST TRANSPLANT REJECTION
     Dosage: UNK
     Route: 048
     Dates: start: 20030104
  7. ARANESP [Concomitant]
     Indication: RED BLOOD CELL ABNORMALITY
     Dosage: UNK
     Route: 058
     Dates: start: 20120907
  8. LANSOPRAZOLE [Concomitant]
     Indication: PROPHYLAXIS
     Dosage: UNK
     Route: 048
     Dates: start: 20130109
  9. LANTHANUM CARBONATE [Concomitant]
     Indication: PROPHYLAXIS
     Dosage: UNK
     Route: 048
     Dates: start: 20120113
  10. SEVELAMER [Concomitant]
     Indication: PROPHYLAXIS
     Dosage: UNK
     Route: 048
     Dates: start: 20130113

REACTIONS (2)
  - Sepsis [Unknown]
  - Infection [Unknown]
